FAERS Safety Report 4997252-6 (Version None)
Quarter: 2006Q2

REPORT INFORMATION
  Report Type: 
  Country: None (occurrence: None)
  Receive Date: 20060505
  Receipt Date: 20060419
  Transmission Date: 20061013
  Serious: Yes (Other)
  Sender: FDA-Public Use
  Company Number: 2006BH008367

PATIENT

DRUGS (9)
  1. DEXAMETHASONE [Suspect]
     Indication: MULTIPLE MYELOMA
     Dosage: 40 MG; PO
     Route: 048
  2. VINCRISTINE SULFATE [Suspect]
     Indication: MULTIPLE MYELOMA
     Dosage: 2 MG; IV
     Route: 042
  3. DOXIL [Suspect]
     Indication: MULTIPLE MYELOMA
     Dosage: 40 MG/M**2; IV
     Route: 042
  4. REVLIMID [Suspect]
     Indication: MULTIPLE MYELOMA
     Dosage: 10 MG; EVERY DAY
  5. R + [Concomitant]
  6. PREDNISONE TAB [Concomitant]
  7. AMOXICILLIN [Concomitant]
  8. ACYCLOVIR [Concomitant]
  9. ASPIRIN [Concomitant]

REACTIONS (1)
  - DEEP VEIN THROMBOSIS [None]
